FAERS Safety Report 9993312 (Version 2)
Quarter: 2014Q2

REPORT INFORMATION
  Report Type: Spontaneous
  Country: US (occurrence: US)
  Receive Date: 20140310
  Receipt Date: 20140515
  Transmission Date: 20141212
  Serious: Yes (Other)
  Sender: FDA-Public Use
  Company Number: US-TEVA-467637USA

PATIENT
  Age: 28 Year
  Sex: Female
  Weight: 54.48 kg

DRUGS (1)
  1. PARAGARD 380A [Suspect]
     Indication: CONTRACEPTION
     Route: 015
     Dates: start: 20110206, end: 20131219

REACTIONS (5)
  - Device dislocation [Recovered/Resolved]
  - Endometrial hypertrophy [Unknown]
  - Ovarian cyst [Unknown]
  - Menorrhagia [Recovered/Resolved]
  - Device expulsion [Recovered/Resolved]
